FAERS Safety Report 5646351-4 (Version None)
Quarter: 2008Q1

REPORT INFORMATION
  Report Type: 
  Country: None (occurrence: None)
  Receive Date: 20080303
  Receipt Date: 20080225
  Transmission Date: 20080703
  Serious: Yes (Death, Hospitalization)
  Sender: FDA-Public Use
  Company Number: US-JNJFOC-20080206694

PATIENT
  Sex: Female

DRUGS (5)
  1. DOXORUBICIN HYDROCHLORIDE [Suspect]
     Route: 042
  2. DOXORUBICIN HYDROCHLORIDE [Suspect]
     Route: 042
  3. DOXORUBICIN HYDROCHLORIDE [Suspect]
     Route: 042
  4. DOXORUBICIN HYDROCHLORIDE [Suspect]
     Indication: UTERINE CANCER
     Route: 042
  5. GEMZAR [Concomitant]
     Indication: UTERINE CANCER
     Route: 065

REACTIONS (2)
  - OFF LABEL USE [None]
  - UTERINE CANCER [None]
